FAERS Safety Report 6495764-X (Version None)
Quarter: 2009Q4

REPORT INFORMATION
  Report Type: 
  Country: None (occurrence: None)
  Receive Date: 20091214
  Receipt Date: 20090811
  Transmission Date: 20100525
  Serious: No
  Sender: FDA-Public Use
  Company Number: US-BRISTOL-MYERS SQUIBB COMPANY-14736797

PATIENT
  Age: 68 Year
  Sex: Male
  Weight: 86 kg

DRUGS (5)
  1. ABILIFY [Suspect]
     Indication: DEPRESSION
     Dates: start: 20090801
  2. METFORMIN [Concomitant]
  3. GLYBURIDE [Concomitant]
  4. SIMVASTATIN [Concomitant]
  5. DEPAKOTE [Concomitant]

REACTIONS (2)
  - INSOMNIA [None]
  - MYALGIA [None]
